FAERS Safety Report 21560189 (Version 3)
Quarter: 2025Q1

REPORT INFORMATION
  Report Type: Spontaneous
  Country: GB (occurrence: GB)
  Receive Date: 20221107
  Receipt Date: 20250225
  Transmission Date: 20250409
  Serious: Yes (Other)
  Sender: INTERCEPT PHARMACEUTICALS
  Company Number: GB-ADVANZ PHARMA-202210007236

PATIENT
  Age: 76 Year
  Sex: Female

DRUGS (1)
  1. OCALIVA [Suspect]
     Active Substance: OBETICHOLIC ACID
     Indication: Primary biliary cholangitis
     Route: 048

REACTIONS (8)
  - Polymyalgia rheumatica [Unknown]
  - Pruritus [Unknown]
  - Constipation [Unknown]
  - Rash erythematous [Unknown]
  - Product dose omission in error [Unknown]
  - Product use issue [Unknown]
  - Product dose omission issue [Unknown]
  - Product supply issue [Unknown]

NARRATIVE: CASE EVENT DATE: 20240716
